FAERS Safety Report 26199051 (Version 1)
Quarter: 2025Q4

REPORT INFORMATION
  Report Type: Spontaneous
  Country: EU (occurrence: EU)
  Receive Date: 20251225
  Receipt Date: 20251225
  Transmission Date: 20260118
  Serious: Yes (Hospitalization)
  Sender: BEIGENE
  Company Number: EU-BEONEMEDICINES-BGN-2025-023171

PATIENT
  Sex: Male

DRUGS (2)
  1. BRUKINSA [Suspect]
     Active Substance: ZANUBRUTINIB
     Indication: Waldenstrom^s macroglobulinaemia
  2. BRUKINSA [Suspect]
     Active Substance: ZANUBRUTINIB

REACTIONS (2)
  - Vasculitis necrotising [Unknown]
  - Haemorrhage [Unknown]
